FAERS Safety Report 5025094-4 (Version None)
Quarter: 2006Q2

REPORT INFORMATION
  Report Type: 
  Country: None (occurrence: None)
  Receive Date: 20060613
  Receipt Date: 20060530
  Transmission Date: 20061013
  Serious: Yes (Other)
  Sender: FDA-Public Use
  Company Number: US-AMGEN-US181243

PATIENT
  Sex: Female

DRUGS (4)
  1. NEULASTA [Suspect]
     Indication: CHEMOTHERAPY
     Dates: start: 20060317, end: 20060317
  2. NEULASTA [Suspect]
     Dates: start: 20051001, end: 20051101
  3. NEUPOGEN [Suspect]
     Indication: CHEMOTHERAPY
     Dates: start: 20060101
  4. HERCEPTIN [Concomitant]
     Dates: start: 20060101

REACTIONS (4)
  - AUTOIMMUNE DISORDER [None]
  - MEDICATION ERROR [None]
  - WHITE BLOOD CELL COUNT ABNORMAL [None]
  - WHITE BLOOD CELL DISORDER [None]
